FAERS Safety Report 8442758-0 (Version None)
Quarter: 2012Q2

REPORT INFORMATION
  Report Type: 
  Country: None (occurrence: None)
  Receive Date: 20120615
  Receipt Date: 20120611
  Transmission Date: 20120825
  Serious: Yes (Other)
  Sender: FDA-Public Use
  Company Number: CA-ROCHE-1062045

PATIENT
  Sex: Female

DRUGS (5)
  1. ADVAIR DISKUS 100/50 [Concomitant]
  2. VENTOLIN [Concomitant]
  3. REACTINE (CANADA) [Concomitant]
  4. FLOVENT [Concomitant]
  5. XOLAIR [Suspect]
     Indication: ASTHMA
     Route: 058
     Dates: start: 20061114

REACTIONS (9)
  - CHEST DISCOMFORT [None]
  - PHARYNGITIS [None]
  - DYSPNOEA EXERTIONAL [None]
  - NASOPHARYNGITIS [None]
  - MUSCLE STRAIN [None]
  - LOWER RESPIRATORY TRACT INFECTION VIRAL [None]
  - COUGH [None]
  - NASAL CONGESTION [None]
  - SNEEZING [None]
